FAERS Safety Report 19582462 (Version 2)
Quarter: 2021Q3

REPORT INFORMATION
  Report Type: Spontaneous
  Country: FR (occurrence: FR)
  Receive Date: 20210720
  Receipt Date: 20210907
  Transmission Date: 20211014
  Serious: Yes (Death, Other)
  Sender: FDA-Public Use
  Company Number: FR-BRISTOL-MYERS SQUIBB COMPANY-BMS-2021-070200

PATIENT
  Age: 78 Year
  Sex: Female
  Weight: 75 kg

DRUGS (2)
  1. OPDIVO [Suspect]
     Active Substance: NIVOLUMAB
     Indication: MALIGNANT MELANOMA
     Dosage: 1 DOSAGE FORM (TOTAL)
     Route: 042
     Dates: start: 20210623, end: 20210623
  2. YERVOY [Suspect]
     Active Substance: IPILIMUMAB
     Indication: MALIGNANT MELANOMA
     Dosage: 1 DOSAGE FORM (TOTAL)
     Route: 042
     Dates: start: 20210623, end: 20210623

REACTIONS (5)
  - Lichenoid keratosis [Fatal]
  - Cardiogenic shock [Fatal]
  - Atrioventricular block complete [Fatal]
  - Night sweats [Fatal]
  - Myocarditis [Fatal]

NARRATIVE: CASE EVENT DATE: 20210624
